FAERS Safety Report 16972127 (Version 3)
Quarter: 2019Q4

REPORT INFORMATION
  Report Type: Spontaneous
  Country: DE (occurrence: DE)
  Receive Date: 20191029
  Receipt Date: 20191121
  Transmission Date: 20200122
  Serious: Yes (Other)
  Sender: FDA-Public Use
  Company Number: DE-BRISTOL-MYERS SQUIBB COMPANY-BMS-2019-103204

PATIENT
  Age: 67 Year
  Sex: Male

DRUGS (1)
  1. OPDIVO [Suspect]
     Active Substance: NIVOLUMAB
     Indication: NON-SMALL CELL LUNG CANCER
     Dosage: UNK
     Route: 065
     Dates: start: 201509

REACTIONS (5)
  - Off label use [Unknown]
  - Tumour pseudoprogression [Unknown]
  - Hyperthyroidism [Unknown]
  - Autoimmune disorder [Unknown]
  - Inflammation [Unknown]

NARRATIVE: CASE EVENT DATE: 201510
